FAERS Safety Report 6080799-1 (Version None)
Quarter: 2009Q1

REPORT INFORMATION
  Report Type: 
  Country: None (occurrence: None)
  Receive Date: 20090217
  Receipt Date: 20090205
  Transmission Date: 20090719
  Serious: Yes (Hospitalization)
  Sender: FDA-Public Use
  Company Number: FR-PFIZER INC-2009167003

PATIENT

DRUGS (2)
  1. BLINDED *PLACEBO [Suspect]
     Indication: CARDIAC FAILURE CHRONIC
     Dosage: UNK MG, 1X/DAY
     Route: 048
     Dates: start: 20061212
  2. EPLERENONE [Suspect]
     Indication: CARDIAC FAILURE CHRONIC
     Dosage: UNK MG, 1X/DAY
     Route: 048
     Dates: start: 20061212

REACTIONS (3)
  - CONDITION AGGRAVATED [None]
  - HYPERKALAEMIA [None]
  - RENAL FAILURE CHRONIC [None]
